FAERS Safety Report 7617233-3 (Version None)
Quarter: 2011Q3

REPORT INFORMATION
  Report Type: 
  Country: None (occurrence: None)
  Receive Date: 20110718
  Receipt Date: 20110706
  Transmission Date: 20111222
  Serious: Yes (Hospitalization)
  Sender: FDA-Public Use
  Company Number: US-JNJFOC-20110703918

PATIENT
  Sex: Female
  Weight: 49.9 kg

DRUGS (4)
  1. INFLIXIMAB, RECOMBINANT [Suspect]
     Indication: CROHN'S DISEASE
     Route: 042
     Dates: start: 20040119, end: 20091012
  2. METRONIDAZOLE [Concomitant]
  3. MEFOXIN [Concomitant]
  4. MERCAPTOPURINE [Concomitant]

REACTIONS (1)
  - APPENDICITIS [None]
